FAERS Safety Report 7764800-2 (Version None)
Quarter: 2011Q3

REPORT INFORMATION
  Report Type: 
  Country: None (occurrence: None)
  Receive Date: 20110919
  Receipt Date: 20110904
  Transmission Date: 20111222
  Serious: Yes (Disabling)
  Sender: FDA-Public Use
  Company Number: GB-DEXPHARM-20111301

PATIENT
  Age: 68 Year
  Sex: Male

DRUGS (21)
  1. METOCLOPRAMIDE [Concomitant]
  2. VENTOLIN HFA [Concomitant]
  3. NICORANDIL [Suspect]
     Dates: start: 20110420
  4. OMEPRAZOLE [Suspect]
     Dates: start: 20110602
  5. E45 ITCH RELIEF [Concomitant]
  6. DIHYDROCODEINE BITARTRATE INJ [Suspect]
     Dates: start: 20110505
  7. FLOXACILLIN SODIUM [Concomitant]
  8. GABAPENTIN [Suspect]
     Dates: start: 20110505
  9. NOVO NORDISK [Suspect]
     Dates: start: 20110610
  10. GLYCERYL TRINITRATE [Suspect]
     Dates: start: 20110715
  11. MORPHINE SULFATE [Suspect]
     Dates: start: 20110505
  12. PRAVASTATIN [Suspect]
     Dates: start: 20110505
  13. INADINE [Concomitant]
  14. ACIDEX SUSPENSION [Concomitant]
  15. CLOPIDOGREL [Suspect]
     Dates: start: 20110715
  16. BISOPROLOL FUMARATE [Suspect]
     Dates: start: 20110411
  17. FUROSEMIDE [Concomitant]
  18. KETOPROFEN [Concomitant]
  19. LOPERAMIDE HCL [Concomitant]
  20. SLOZEM [Suspect]
     Dates: start: 20110328
  21. FERROUS SULFATE TAB [Concomitant]

REACTIONS (2)
  - DIZZINESS [None]
  - DYSPNOEA [None]
